FAERS Safety Report 9034326 (Version 1)
Quarter: 2013Q1

REPORT INFORMATION
  Report Type: Spontaneous
  Country: US (occurrence: US)
  Receive Date: 20130128
  Receipt Date: 20130128
  Transmission Date: 20140127
  Serious: Yes (Other)
  Sender: FDA-Public Use
  Company Number: US-AMGEN-USASP2012066469

PATIENT
  Age: 47 Year
  Sex: Female

DRUGS (6)
  1. ENBREL [Suspect]
     Indication: RHEUMATOID ARTHRITIS
     Dosage: 50 MG, QWK
     Route: 058
     Dates: start: 20100112
  2. SYMBICORT [Concomitant]
     Dosage: 160-4.5 MUG, UNK
  3. MAXAIR [Concomitant]
     Dosage: 0.2 MG, PRN
  4. OMEPRAZOLE [Concomitant]
     Dosage: 20 MG, PRN
  5. RECLIPSEN [Concomitant]
     Dosage: 28 DAY TABLET, PRN
  6. MULTIVITAMINS, PLAIN [Concomitant]
     Dosage: UNK UNK, PRN

REACTIONS (9)
  - Presyncope [Unknown]
  - Dyspnoea [Not Recovered/Not Resolved]
  - Throat tightness [Unknown]
  - Food allergy [Unknown]
  - Dizziness [Unknown]
  - Headache [Not Recovered/Not Resolved]
  - Paraesthesia [Not Recovered/Not Resolved]
  - Diarrhoea [Not Recovered/Not Resolved]
  - Constipation [Not Recovered/Not Resolved]
